FAERS Safety Report 14033166 (Version 1)
Quarter: 2017Q4

REPORT INFORMATION
  Report Type: Spontaneous
  Country: US (occurrence: US)
  Receive Date: 20171003
  Receipt Date: 20171003
  Transmission Date: 20180321
  Serious: No
  Sender: FDA-Public Use
  Company Number: US-PFIZER INC-2017417723

PATIENT
  Age: 67 Year
  Sex: Male

DRUGS (1)
  1. EUCRISA [Suspect]
     Active Substance: CRISABOROLE
     Indication: DERMATITIS ATOPIC
     Dosage: UNK UNK, 2X/DAY
     Route: 061
     Dates: start: 20170905

REACTIONS (3)
  - Application site erythema [Unknown]
  - Drug ineffective [Unknown]
  - Application site pruritus [Unknown]
